FAERS Safety Report 11872375 (Version 1)
Quarter: 2015Q4

REPORT INFORMATION
  Report Type: Spontaneous
  Country: US (occurrence: US)
  Receive Date: 20151228
  Receipt Date: 20151228
  Transmission Date: 20160305
  Serious: Yes (Other)
  Sender: FDA-Public Use
  Company Number: US-PFIZER INC-2015445288

PATIENT
  Sex: Male

DRUGS (1)
  1. ROBITUSSIN COUGH LONG-ACTING [Suspect]
     Active Substance: DEXTROMETHORPHAN HYDROBROMIDE
     Dosage: TWO BOTTLES
     Dates: start: 20100430

REACTIONS (6)
  - Heart rate increased [Unknown]
  - Mobility decreased [Unknown]
  - Disorientation [Unknown]
  - Overdose [Unknown]
  - Communication disorder [Unknown]
  - Dysarthria [Unknown]

NARRATIVE: CASE EVENT DATE: 20100430
